FAERS Safety Report 7729015-2 (Version None)
Quarter: 2011Q3

REPORT INFORMATION
  Report Type: 
  Country: None (occurrence: None)
  Receive Date: 20110831
  Receipt Date: 20110809
  Transmission Date: 20111222
  Serious: Yes (Death, Hospitalization)
  Sender: FDA-Public Use
  Company Number: DSA_80512_2004

PATIENT
  Sex: Female

DRUGS (6)
  1. FLEXERIL [Concomitant]
  2. METHADONE HCL [Concomitant]
  3. SEROQUEL [Concomitant]
  4. XYREM [Suspect]
     Indication: PRODUCT USED FOR UNKNOWN INDICATION
     Dosage: 4.5 GM (2.25 GM, 2 IN 1 D), ORAL
     Route: 048
  5. AMPHETAMINE AND DEXTROAMPHETAMINE [Concomitant]
  6. VALIUM [Concomitant]

REACTIONS (4)
  - UNRESPONSIVE TO STIMULI [None]
  - DRUG SCREEN POSITIVE [None]
  - BRAIN INJURY [None]
  - CARDIAC ARREST [None]
